FAERS Safety Report 24407666 (Version 1)
Quarter: 2024Q4

REPORT INFORMATION
  Report Type: Spontaneous
  Country: US (occurrence: US)
  Receive Date: 20241007
  Receipt Date: 20241007
  Transmission Date: 20250115
  Serious: Yes (Hospitalization, Other)
  Sender: SANOFI AVENTIS
  Company Number: US-SA-2024SA288447

PATIENT
  Age: 58 Year
  Sex: Female

DRUGS (3)
  1. DUPIXENT [Suspect]
     Active Substance: DUPILUMAB
     Indication: Neurodermatitis
     Dosage: 300 MG, QOW
     Route: 058
     Dates: start: 202403, end: 202406
  2. DUPIXENT [Suspect]
     Active Substance: DUPILUMAB
     Dosage: 300 MG, QOW
     Route: 058
     Dates: start: 202407
  3. PREDNISONE [Suspect]
     Active Substance: PREDNISONE
     Dosage: UNK
     Dates: start: 202406, end: 202407

REACTIONS (9)
  - Pericardial effusion [Unknown]
  - Hyperthyroidism [Unknown]
  - Cardiac flutter [Unknown]
  - Cardiomegaly [Unknown]
  - Cardiac murmur [Unknown]
  - Dyspnoea [Unknown]
  - Dysphagia [Unknown]
  - Lymphadenopathy [Unknown]
  - Rash [Unknown]

NARRATIVE: CASE EVENT DATE: 20240101
